FAERS Safety Report 8085690-7 (Version None)
Quarter: 2012Q1

REPORT INFORMATION
  Report Type: 
  Country: None (occurrence: None)
  Receive Date: 20120128
  Receipt Date: 20110602
  Transmission Date: 20120608
  Serious: No
  Sender: FDA-Public Use
  Company Number: US-ABBOTT-11P-163-0729978-00

PATIENT
  Age: 72 Year
  Sex: Female

DRUGS (7)
  1. HUMIRA [Suspect]
     Dates: start: 20110520
  2. CALCIUM [Concomitant]
     Indication: PRODUCT USED FOR UNKNOWN INDICATION
  3. SYNTHROID [Concomitant]
     Indication: THYROID DISORDER
  4. ACTONEL [Concomitant]
     Indication: PRODUCT USED FOR UNKNOWN INDICATION
  5. LASIX [Concomitant]
     Indication: FLUID RETENTION
  6. HUMIRA [Suspect]
     Indication: CROHN'S DISEASE
     Dosage: DAY 15
     Dates: start: 20110604, end: 20110604
  7. CARDIZEM [Concomitant]
     Indication: BLOOD PRESSURE

REACTIONS (5)
  - OROPHARYNGEAL PAIN [None]
  - INJECTION SITE PAIN [None]
  - NASAL CONGESTION [None]
  - SEASONAL ALLERGY [None]
  - THROAT IRRITATION [None]
